FAERS Safety Report 10298710 (Version 2)
Quarter: 2014Q3

REPORT INFORMATION
  Report Type: Spontaneous
  Country: US (occurrence: US)
  Receive Date: 20140711
  Receipt Date: 20140711
  Transmission Date: 20150326
  Serious: Yes (Hospitalization, Disabling, Other)
  Sender: FDA-Public Use
  Company Number: US-009507513-2011SP016071

PATIENT
  Sex: Female
  Weight: 56.7 kg

DRUGS (6)
  1. PROVENTIL [Concomitant]
     Active Substance: ALBUTEROL
     Indication: ASTHMA
     Dosage: UNK UNK, PRN
  2. NUVARING [Suspect]
     Active Substance: ETHINYL ESTRADIOL\ETONOGESTREL
     Indication: CONTRACEPTION
     Dosage: 0.12-0.015 MG/24 HR, IN FOR 3 WEEKS AND REMOVE 1 WEEK
     Route: 067
     Dates: start: 200903, end: 20090720
  3. CLARITIN [Concomitant]
     Active Substance: LORATADINE
     Indication: HYPERSENSITIVITY
     Dosage: 1 DF, QD
  4. VITAMINS (UNSPECIFIED) [Concomitant]
     Active Substance: VITAMINS
     Indication: NUTRITIONAL SUPPLEMENTATION
     Dosage: UNK UNK, QD
  5. FLEXERIL [Concomitant]
     Active Substance: CYCLOBENZAPRINE HYDROCHLORIDE
     Indication: SYSTEMIC LUPUS ERYTHEMATOSUS
     Dosage: UNK UNK, PRN
  6. METICORTEN [Concomitant]
     Active Substance: PREDNISONE
     Indication: SYSTEMIC LUPUS ERYTHEMATOSUS
     Dosage: FOUR 1 MG TABLETS PER DAY
     Dates: start: 200906, end: 20090720

REACTIONS (10)
  - Nausea [Unknown]
  - Systemic lupus erythematosus [Unknown]
  - Pulmonary embolism [Recovered/Resolved]
  - Atelectasis [Unknown]
  - Depression [Unknown]
  - Abdominal pain [Unknown]
  - Arthritis [Recovering/Resolving]
  - Pruritus [Unknown]
  - Vaginal discharge [Recovering/Resolving]
  - Peripheral swelling [Unknown]

NARRATIVE: CASE EVENT DATE: 2009
